FAERS Safety Report 8492585-3 (Version None)
Quarter: 2012Q3

REPORT INFORMATION
  Report Type: 
  Country: None (occurrence: None)
  Receive Date: 20120706
  Receipt Date: 20120627
  Transmission Date: 20120928
  Serious: Yes (Death, Life-Threatening, Hospitalization)
  Sender: FDA-Public Use
  Company Number: LB-CELGENEUS-093-20785-11090435

PATIENT
  Sex: Male

DRUGS (3)
  1. ZOMETA [Concomitant]
     Route: 065
  2. THALIDOMIDE [Suspect]
     Indication: MULTIPLE MYELOMA
     Dosage: 200 MILLIGRAM
     Route: 048
     Dates: start: 20090501, end: 20101001
  3. VELCADE [Concomitant]
     Route: 065

REACTIONS (2)
  - LUNG INFECTION [None]
  - HAEMORRHAGE [None]
